FAERS Safety Report 21194212 (Version 4)
Quarter: 2022Q4

REPORT INFORMATION
  Report Type: Other
  Country: US (occurrence: None)
  Receive Date: 20220810
  Receipt Date: 20221014
  Transmission Date: 20230113
  Serious: Yes (Death, Other)
  Sender: FDA-Public Use
  Company Number: US-ROCHE-3155497

PATIENT
  Age: 8 Year
  Sex: Male
  Weight: 19.4 kg

DRUGS (4)
  1. EVRYSDI [Suspect]
     Active Substance: RISDIPLAM
     Indication: Spinal muscular atrophy
     Dosage: TAKE 6.6ML (5MG) VIA G-TUBE DAILY
     Route: 065
  2. LEVETIRACETAM [Concomitant]
     Active Substance: LEVETIRACETAM
     Indication: Epilepsy
     Dates: start: 2018
  3. PHENOBARBITAL [Concomitant]
     Active Substance: PHENOBARBITAL
     Indication: Epilepsy
     Dates: start: 2019
  4. PHENOBARBITAL [Concomitant]
     Active Substance: PHENOBARBITAL
     Dates: start: 2019

REACTIONS (3)
  - Respiratory disorder [Fatal]
  - Epilepsy [Unknown]
  - Brain injury [Unknown]

NARRATIVE: CASE EVENT DATE: 20220804
